FAERS Safety Report 6999452-2 (Version None)
Quarter: 2010Q3

REPORT INFORMATION
  Report Type: 
  Country: None (occurrence: None)
  Receive Date: 20100902
  Receipt Date: 20100629
  Transmission Date: 20110219
  Serious: Yes (Other)
  Sender: FDA-Public Use
  Company Number: 237622USA

PATIENT
  Sex: Male

DRUGS (1)
  1. METOCLOPRAMIDE [Suspect]

REACTIONS (7)
  - DYSKINESIA [None]
  - DYSTONIA [None]
  - EXCESSIVE EYE BLINKING [None]
  - OROMANDIBULAR DYSTONIA [None]
  - STEREOTYPY [None]
  - TARDIVE DYSKINESIA [None]
  - TORTICOLLIS [None]
